FAERS Safety Report 8270253-0 (Version None)
Quarter: 2012Q2

REPORT INFORMATION
  Report Type: 
  Country: None (occurrence: None)
  Receive Date: 20120410
  Receipt Date: 20120402
  Transmission Date: 20120825
  Serious: Yes (Death)
  Sender: FDA-Public Use
  Company Number: DE-UCBSA-001983

PATIENT

DRUGS (1)
  1. VIMPAT [Suspect]
     Indication: PARTIAL SEIZURES

REACTIONS (1)
  - BREAST CANCER METASTATIC [None]
